FAERS Safety Report 8981084 (Version 1)
Quarter: 2012Q4

REPORT INFORMATION
  Report Type: 
  Country: US (occurrence: US)
  Receive Date: 20121221
  Receipt Date: 20121221
  Transmission Date: 20130627
  Serious: Yes (Other)
  Sender: FDA-Public Use
  Company Number: US-PFIZER INC-2012322134

PATIENT
  Age: 60 Year
  Sex: Male
  Weight: 95.24 kg

DRUGS (9)
  1. REVATIO [Suspect]
     Indication: PULMONARY HYPERTENSION
     Dosage: 20 mg, 3x/day
     Route: 048
     Dates: start: 200809
  2. SIMVASTATIN [Concomitant]
     Dosage: 20 mg, 1x/day
  3. CETIRIZINE [Concomitant]
     Dosage: 10 mg, 1x/day
  4. ACYCLOVIR [Concomitant]
     Dosage: 400 mg, 1x/day
  5. VITAMIN C [Concomitant]
     Dosage: 500 mg, 2x/day
  6. FOLIC ACID [Concomitant]
     Dosage: 800 ug, 1x/day
  7. LASIX [Concomitant]
     Dosage: 40 mg, alternate day
  8. METHOTREXATE [Concomitant]
     Dosage: 5 mg, weekly
  9. PREDNISONE [Concomitant]
     Dosage: 5 mg, 1x/day

REACTIONS (2)
  - Neoplasm malignant [Unknown]
  - Prostatic specific antigen increased [Unknown]
